FAERS Safety Report 24543772 (Version 1)
Quarter: 2024Q4

REPORT INFORMATION
  Report Type: Spontaneous
  Country: US (occurrence: US)
  Receive Date: 20241024
  Receipt Date: 20241024
  Transmission Date: 20250115
  Serious: No
  Sender: GLAXOSMITHKLINE
  Company Number: US-GSKCCFUS-Case-02130763_AE-117497

PATIENT
  Sex: Female

DRUGS (1)
  1. NUCALA [Suspect]
     Active Substance: MEPOLIZUMAB
     Indication: Asthma
     Dosage: UNK

REACTIONS (5)
  - Asthma [Unknown]
  - Pulmonary mass [Unknown]
  - Bronchial secretion retention [Unknown]
  - Blood beta-D-glucan positive [Unknown]
  - Fungal infection [Unknown]
